FAERS Safety Report 6049904-7 (Version None)
Quarter: 2009Q1

REPORT INFORMATION
  Report Type: 
  Country: None (occurrence: None)
  Receive Date: 20090121
  Receipt Date: 20080104
  Transmission Date: 20090719
  Serious: Yes (Other)
  Sender: FDA-Public Use
  Company Number: HQWYE697302AUG04

PATIENT
  Age: 48 Year
  Sex: Female
  Weight: 54.93 kg

DRUGS (5)
  1. PREMPRO [Suspect]
  2. CYCRIN [Suspect]
  3. PREMARIN [Suspect]
  4. PROMETRIUM [Suspect]
  5. PROVERA [Suspect]

REACTIONS (1)
  - BREAST CANCER [None]
